FAERS Safety Report 13324029 (Version 2)
Quarter: 2017Q1

REPORT INFORMATION
  Report Type: Spontaneous
  Country: FR (occurrence: FR)
  Receive Date: 20170310
  Receipt Date: 20170329
  Transmission Date: 20170428
  Serious: Yes (Other)
  Sender: FDA-Public Use
  Company Number: ALCN2017FR001525

PATIENT
  Age: 71 Year
  Sex: Female

DRUGS (6)
  1. TAREG [Concomitant]
     Active Substance: VALSARTAN
     Indication: HYPERTENSION
     Dosage: 1 DF, QD (IN THE MORNING)
     Route: 065
     Dates: start: 20160223
  2. DUOTRAV PQ [Suspect]
     Active Substance: TIMOLOL\TRAVOPROST
     Indication: INTRAOCULAR PRESSURE INCREASED
     Dosage: 1 GTT, QD (IN THE EVENING)
     Route: 047
     Dates: start: 20170206, end: 20170213
  3. SYSTANE ULTRA [Suspect]
     Active Substance: POLYETHYLENE GLYCOL 400\PROPYLENE GLYCOL
     Indication: EYE LUBRICATION THERAPY
     Dosage: 1 GTT, BID (IN THE MORNING AND EVENING)
     Route: 047
  4. OPTIVE FUSION [Concomitant]
     Indication: EYE LUBRICATION THERAPY
     Dosage: 1 GTT, BID (IN THE MORNING AND EVENING)
     Route: 065
     Dates: start: 20170206, end: 20170208
  5. LYSANXIA [Concomitant]
     Active Substance: PRAZEPAM
     Indication: ANXIETY
     Dosage: 10 GTT, QHS
     Route: 065
     Dates: start: 20170217
  6. DUOTRAV PQ [Suspect]
     Active Substance: TIMOLOL\TRAVOPROST
     Dosage: 1 GTT, QD (IN THE EVENING)
     Route: 047

REACTIONS (2)
  - Scleral hyperaemia [Recovered/Resolved]
  - Eye haemorrhage [Recovered/Resolved]

NARRATIVE: CASE EVENT DATE: 20170206
